FAERS Safety Report 6292356-2 (Version None)
Quarter: 2009Q3

REPORT INFORMATION
  Report Type: 
  Country: None (occurrence: None)
  Receive Date: 20090730
  Receipt Date: 20090730
  Transmission Date: 20100115
  Serious: No
  Sender: FDA-Public Use
  Company Number: None

PATIENT
  Sex: Male

DRUGS (1)
  1. ULTRAM [Suspect]
     Indication: BACK PAIN
     Dosage: 50 MG QID PO
     Route: 048
     Dates: start: 20090719

REACTIONS (1)
  - BLISTER [None]
